FAERS Safety Report 12826932 (Version 1)
Quarter: 2016Q4

REPORT INFORMATION
  Report Type: Report from Study
  Country: BR (occurrence: BR)
  Receive Date: 20161006
  Receipt Date: 20161006
  Transmission Date: 20170207
  Serious: Yes (Other)
  Sender: FDA-Public Use
  Company Number: PHHY2015BR135419

PATIENT
  Age: 25 Year
  Sex: Female
  Weight: 67 kg

DRUGS (3)
  1. EXJADE [Suspect]
     Active Substance: DEFERASIROX
     Indication: BONE MARROW FAILURE
     Dosage: 20 MG/KG, QD (1500 MG ONCE DAILY, 3 DF)
     Route: 048
     Dates: start: 201412
  2. EXJADE [Suspect]
     Active Substance: DEFERASIROX
     Indication: APLASTIC ANAEMIA
     Dosage: 20 MG/KG, QOD
     Route: 048
     Dates: start: 201602
  3. EXJADE [Suspect]
     Active Substance: DEFERASIROX
     Dosage: 1000 MG, UNK (2 DF)
     Route: 048

REACTIONS (13)
  - Blood creatinine increased [Unknown]
  - Serum ferritin increased [Unknown]
  - Blood iron increased [Unknown]
  - Blood creatinine abnormal [Unknown]
  - Incorrect dose administered [Unknown]
  - Liver disorder [Unknown]
  - Nausea [Unknown]
  - Blood iron decreased [Unknown]
  - Renal impairment [Unknown]
  - Renal disorder [Unknown]
  - Blood urea increased [Unknown]
  - Drug prescribing error [Unknown]
  - Blood urea abnormal [Unknown]

NARRATIVE: CASE EVENT DATE: 201602
